FAERS Safety Report 4357311-8 (Version None)
Quarter: 2004Q2

REPORT INFORMATION
  Report Type: 
  Country: None (occurrence: None)
  Receive Date: 20040507
  Receipt Date: 20040420
  Transmission Date: 20050107
  Serious: Yes (Other)
  Sender: FDA-Public Use
  Company Number: USA040465349

PATIENT
  Age: 49 Year
  Sex: Female
  Weight: 85 kg

DRUGS (2)
  1. HUMULIN 70/30 [Suspect]
     Indication: DIABETES MELLITUS
     Dates: end: 20030101
  2. HUMULIN N [Suspect]
     Indication: DIABETES MELLITUS
     Dates: end: 20030101

REACTIONS (2)
  - DIALYSIS [None]
  - TREMOR [None]
